APPROVED DRUG PRODUCT: NORPACE
Active Ingredient: DISOPYRAMIDE PHOSPHATE
Strength: EQ 150MG BASE
Dosage Form/Route: CAPSULE;ORAL
Application: N017447 | Product #002 | TE Code: AB
Applicant: PFIZER INC
Approved: Approved Prior to Jan 1, 1982 | RLD: Yes | RS: Yes | Type: RX